FAERS Safety Report 21387425 (Version 1)
Quarter: 2022Q3

REPORT INFORMATION
  Report Type: Spontaneous
  Country: US (occurrence: None)
  Receive Date: 20220926
  Receipt Date: 20220926
  Transmission Date: 20221026
  Serious: Yes (Other)
  Sender: FDA-Public Use
  Company Number: None

PATIENT
  Sex: Female

DRUGS (1)
  1. PROLIA [Suspect]
     Active Substance: DENOSUMAB
     Dosage: 60MG  EVERY 6 MONTHS OTHER SUBCUTANEOUS?
     Route: 058
     Dates: start: 202006, end: 202204

REACTIONS (1)
  - Drug hypersensitivity [None]
